FAERS Safety Report 4785540-8 (Version None)
Quarter: 2005Q3

REPORT INFORMATION
  Report Type: 
  Country: None (occurrence: None)
  Receive Date: 20050929
  Receipt Date: 20050916
  Transmission Date: 20060218
  Serious: Yes (Hospitalization, Other)
  Sender: FDA-Public Use
  Company Number: 2005132932

PATIENT
  Sex: Female
  Weight: 68.0396 kg

DRUGS (4)
  1. DILANTIN [Suspect]
     Indication: CONVULSION
     Dates: start: 19750101
  2. ARICEPT [Suspect]
     Indication: DEMENTIA ALZHEIMER'S TYPE
     Dates: start: 20050101, end: 20050101
  3. PHENOBARBITAL TAB [Suspect]
     Indication: CONVULSION
  4. CALCIUM (CALCIUM) [Concomitant]

REACTIONS (11)
  - ACTIVITIES OF DAILY LIVING IMPAIRED [None]
  - ASTHENIA [None]
  - CEREBRAL HAEMORRHAGE [None]
  - DEAFNESS [None]
  - DEMENTIA ALZHEIMER'S TYPE [None]
  - DEPRESSION [None]
  - FALL [None]
  - FATIGUE [None]
  - HEAD INJURY [None]
  - MEMORY IMPAIRMENT [None]
  - URINARY INCONTINENCE [None]
